FAERS Safety Report 9626344 (Version 4)
Quarter: 2013Q4

REPORT INFORMATION
  Report Type: Spontaneous
  Country: ES (occurrence: ES)
  Receive Date: 20131016
  Receipt Date: 20131217
  Transmission Date: 20140711
  Serious: Yes (Life-Threatening, Other)
  Sender: FDA-Public Use
  Company Number: ES-BAXTER-2013BAX039507

PATIENT
  Age: 70 Year
  Sex: Female
  Weight: 60 kg

DRUGS (4)
  1. GAMMAGARD S/D 10 G [Suspect]
     Indication: GUILLAIN-BARRE SYNDROME
     Dosage: 3 VIALS IN A SINGLE DOSE
     Route: 065
     Dates: start: 20131006, end: 20131006
  2. GAMMAGARD S/D 10 G [Suspect]
     Indication: SELECTIVE IGA IMMUNODEFICIENCY
  3. GAMMAGARD S/D 10 G [Suspect]
     Indication: SELECTIVE IGM IMMUNODEFICIENCY
  4. GAMMAGARD S/D 10 G [Suspect]
     Indication: SELECTIVE IGG SUBCLASS DEFICIENCY

REACTIONS (3)
  - Tremor [Recovered/Resolved]
  - Trismus [Recovered/Resolved]
  - Haemodynamic instability [Recovered/Resolved]
